FAERS Safety Report 15207653 (Version 1)
Quarter: 2018Q3

REPORT INFORMATION
  Report Type: Spontaneous
  Country: US (occurrence: US)
  Receive Date: 20180727
  Receipt Date: 20180727
  Transmission Date: 20181010
  Serious: No
  Sender: FDA-Public Use
  Company Number: US-ALLERGAN-1819418US

PATIENT
  Sex: Male

DRUGS (2)
  1. ANDRODERM [Suspect]
     Active Substance: TESTOSTERONE
     Indication: ANDROGEN THERAPY
     Dosage: 1 PATCH DAILY
     Route: 062
     Dates: start: 201803
  2. ANDRODERM [Suspect]
     Active Substance: TESTOSTERONE
     Dosage: UNK
     Route: 062
     Dates: start: 20180403

REACTIONS (6)
  - Application site burn [Not Recovered/Not Resolved]
  - Product storage error [Unknown]
  - Product use complaint [Unknown]
  - Product quality issue [Unknown]
  - Product adhesion issue [Unknown]
  - Application site vesicles [Not Recovered/Not Resolved]

NARRATIVE: CASE EVENT DATE: 201803
